FAERS Safety Report 9519733 (Version 1)
Quarter: 2013Q3

REPORT INFORMATION
  Report Type: Spontaneous
  Country: GB (occurrence: GB)
  Receive Date: 20130912
  Receipt Date: 20130912
  Transmission Date: 20140515
  Serious: Yes (Other)
  Sender: FDA-Public Use
  Company Number: GB-ACTAVISPR-2013-15785

PATIENT
  Age: 72 Year
  Sex: Male

DRUGS (4)
  1. CLARITHROMYCIN (UNKNOWN) [Suspect]
     Indication: PRODUCT USED FOR UNKNOWN INDICATION
     Dosage: UNK
     Route: 042
  2. FENTANYL [Concomitant]
     Indication: ANAESTHESIA
     Dosage: UNK
     Route: 065
  3. PROPOFOL [Concomitant]
     Indication: ANAESTHESIA
     Dosage: UNK
     Route: 065
  4. MORPHINE [Concomitant]
     Indication: ANAESTHESIA
     Dosage: UNK
     Route: 042

REACTIONS (1)
  - Infusion site thrombosis [Recovered/Resolved]
